FAERS Safety Report 24580401 (Version 1)
Quarter: 2024Q4

REPORT INFORMATION
  Report Type: Spontaneous
  Country: US (occurrence: US)
  Receive Date: 20241105
  Receipt Date: 20241105
  Transmission Date: 20250115
  Serious: Yes (Hospitalization, Other)
  Sender: PFIZER
  Company Number: US-PFIZER INC-202400291788

PATIENT
  Age: 55 Year
  Sex: Female
  Weight: 96.16 kg

DRUGS (2)
  1. XELJANZ XR [Suspect]
     Active Substance: TOFACITINIB CITRATE
     Indication: Rheumatoid arthritis
     Dosage: UNK
     Dates: end: 20240617
  2. XELJANZ XR [Suspect]
     Active Substance: TOFACITINIB CITRATE
     Dosage: (11MG, ONE TABLET ONCE A DAY IN THE MORNING, BY MOUTH)
     Route: 048
     Dates: start: 202407

REACTIONS (2)
  - Back pain [Unknown]
  - Osteoarthritis [Unknown]
